FAERS Safety Report 16525087 (Version 1)
Quarter: 2019Q3

REPORT INFORMATION
  Report Type: Report from Study
  Country: JP (occurrence: JP)
  Receive Date: 20190703
  Receipt Date: 20190703
  Transmission Date: 20191004
  Serious: Yes (Hospitalization, Other)
  Sender: FDA-Public Use
  Company Number: JP-JNJFOC-20190631294

PATIENT
  Age: 68 Year
  Sex: Male

DRUGS (5)
  1. METHOTREXATE. [Concomitant]
     Active Substance: METHOTREXATE
     Route: 065
     Dates: start: 20170720
  2. SIMPONI [Suspect]
     Active Substance: GOLIMUMAB
     Indication: RHEUMATOID ARTHRITIS
     Route: 058
     Dates: start: 20170720, end: 20170817
  3. PREDNISOLONE. [Concomitant]
     Active Substance: PREDNISOLONE
     Route: 065
     Dates: start: 20170720
  4. AZULFIDINE EN-TABS [Concomitant]
     Active Substance: SULFASALAZINE
     Route: 048
     Dates: start: 20170720
  5. FOLIAMIN [Concomitant]
     Active Substance: FOLIC ACID
     Route: 065
     Dates: start: 20170720

REACTIONS (1)
  - Gastric cancer [Recovered/Resolved]

NARRATIVE: CASE EVENT DATE: 20170905
